FAERS Safety Report 6111800-4 (Version None)
Quarter: 2009Q1

REPORT INFORMATION
  Report Type: 
  Country: None (occurrence: None)
  Receive Date: 20090311
  Receipt Date: 20090310
  Transmission Date: 20090719
  Serious: Yes (Other)
  Sender: FDA-Public Use
  Company Number: US-BRISTOL-MYERS SQUIBB COMPANY-14538557

PATIENT
  Sex: Female

DRUGS (3)
  1. CARBIDOPA AND LEVODOPA [Suspect]
     Indication: PARKINSON'S DISEASE
     Dates: start: 20050727
  2. STALEVO 100 [Suspect]
  3. ALDARA [Concomitant]

REACTIONS (1)
  - BOWEN'S DISEASE [None]
